FAERS Safety Report 4999935-0 (Version None)
Quarter: 2006Q1

REPORT INFORMATION
  Report Type: 
  Country: None (occurrence: None)
  Receive Date: 20060315
  Receipt Date: 20060215
  Transmission Date: 20060701
  Serious: Yes (Other)
  Sender: FDA-Public Use
  Company Number: 437031

PATIENT
  Sex: Female

DRUGS (5)
  1. BONIVA [Suspect]
     Indication: DRUG USE FOR UNKNOWN INDICATION
     Dates: start: 20060201
  2. THYROID TAB [Concomitant]
  3. VITAMINS NOS (MULTIVITAMIN NOS) [Concomitant]
  4. CALCIUM (CALCIUM) [Concomitant]
  5. FISH OIL (FISH OIL) [Concomitant]

REACTIONS (3)
  - BRONCHITIS [None]
  - JOINT SWELLING [None]
  - UPPER RESPIRATORY TRACT INFECTION [None]
